FAERS Safety Report 19150048 (Version 2)
Quarter: 2021Q2

REPORT INFORMATION
  Report Type: Spontaneous
  Country: AR (occurrence: AR)
  Receive Date: 20210417
  Receipt Date: 20210528
  Transmission Date: 20210717
  Serious: Yes (Hospitalization)
  Sender: FDA-Public Use
  Company Number: NVSC2021AR083264

PATIENT
  Sex: Female

DRUGS (4)
  1. TEGRETOL [Suspect]
     Active Substance: CARBAMAZEPINE
     Indication: SEIZURE
     Dosage: 3 DF, QD (3 OF 200 MG)
     Route: 065
     Dates: start: 2011
  2. TEGRETOL [Suspect]
     Active Substance: CARBAMAZEPINE
     Dosage: 400 MG, TID
     Route: 065
     Dates: start: 2015
  3. TEGRETOL [Suspect]
     Active Substance: CARBAMAZEPINE
     Dosage: 3 DF, QD (3 OF 400 MG)
     Route: 065
  4. OLANZAPINE. [Concomitant]
     Active Substance: OLANZAPINE
     Indication: SCHIZOPHRENIA
     Dosage: 3 DF, QD
     Route: 065
     Dates: start: 2001

REACTIONS (7)
  - Syncope [Unknown]
  - Gingival disorder [Unknown]
  - Intentional self-injury [Unknown]
  - Fall [Unknown]
  - Impaired self-care [Unknown]
  - Tooth malformation [Unknown]
  - Seizure [Unknown]

NARRATIVE: CASE EVENT DATE: 2015
